FAERS Safety Report 8847664 (Version 4)
Quarter: 2013Q2

REPORT INFORMATION
  Report Type: Spontaneous
  Country: US (occurrence: US)
  Receive Date: 20121018
  Receipt Date: 20130424
  Transmission Date: 20140414
  Serious: No
  Sender: FDA-Public Use
  Company Number: US-ASTRAZENECA-2012SE78382

PATIENT
  Age: 56 Year
  Sex: Female

DRUGS (4)
  1. NEXIUM [Suspect]
     Indication: GASTROOESOPHAGEAL REFLUX DISEASE
     Route: 048
     Dates: end: 2012
  2. NEXIUM [Suspect]
     Indication: GASTROOESOPHAGEAL REFLUX DISEASE
     Route: 048
  3. OMEPRAZOLE [Suspect]
     Indication: GASTROOESOPHAGEAL REFLUX DISEASE
     Route: 048
     Dates: start: 2012, end: 2012
  4. XANAX [Concomitant]
     Indication: PANIC ATTACK

REACTIONS (17)
  - Hypertension [Unknown]
  - Hot flush [Unknown]
  - Tremor [Unknown]
  - Sleep disorder due to general medical condition, insomnia type [Unknown]
  - Panic attack [Unknown]
  - Road traffic accident [Unknown]
  - Nervous system disorder [Unknown]
  - Arthritis [Unknown]
  - Dyspepsia [Unknown]
  - Depression [Unknown]
  - Abdominal discomfort [Unknown]
  - Headache [Recovered/Resolved]
  - Erythema [Recovered/Resolved]
  - Erythema [Recovered/Resolved]
  - Malaise [Unknown]
  - Drug dose omission [Unknown]
  - Drug ineffective [Unknown]
